FAERS Safety Report 7512026-X (Version None)
Quarter: 2011Q2

REPORT INFORMATION
  Report Type: 
  Country: None (occurrence: None)
  Receive Date: 20110520
  Receipt Date: 20110517
  Transmission Date: 20111010
  Serious: Yes (Hospitalization)
  Sender: FDA-Public Use
  Company Number: 2009SP015442

PATIENT
  Age: 67 Year
  Sex: Male
  Weight: 86.2 kg

DRUGS (12)
  1. LIPITOR [Concomitant]
  2. FLAGYL [Concomitant]
  3. PANTOPRAZOLE SODIUM [Concomitant]
  4. TEMODAL [Suspect]
     Indication: MYELODYSPLASTIC SYNDROME
     Dosage: 400 MG; QD;PO
     Route: 048
     Dates: start: 20090609, end: 20090814
  5. TYLENOL-500 [Concomitant]
  6. AMOXICILLIN AND CLAVULANATE POTASSIUM [Concomitant]
  7. NEURONTIN [Concomitant]
  8. LASIX [Concomitant]
  9. FLOMAX [Concomitant]
  10. MONOCOR [Concomitant]
  11. DIFLUCAN [Concomitant]
  12. PROSCAR [Concomitant]

REACTIONS (4)
  - PYOMYOSITIS [None]
  - MUSCLE DISORDER [None]
  - INFARCTION [None]
  - MYOSITIS [None]
